FAERS Safety Report 4899164-5 (Version None)
Quarter: 2006Q1

REPORT INFORMATION
  Report Type: 
  Country: None (occurrence: None)
  Receive Date: 20060130
  Receipt Date: 20060120
  Transmission Date: 20060701
  Serious: Yes (Other)
  Sender: FDA-Public Use
  Company Number: 13272

PATIENT
  Age: 33 Year
  Sex: Female

DRUGS (3)
  1. METHOTREXATE [Suspect]
     Indication: ARTHRITIS
     Dosage: 15 MG WEEKLY
  2. METHOTREXATE [Suspect]
     Indication: CONDITION AGGRAVATED
     Dosage: 15 MG WEEKLY
  3. FEMODENE [Concomitant]

REACTIONS (3)
  - ABDOMINAL PAIN LOWER [None]
  - MENORRHAGIA [None]
  - METRORRHAGIA [None]
